FAERS Safety Report 9241853 (Version 2)
Quarter: 2013Q2

REPORT INFORMATION
  Report Type: Report from Study
  Country: DE (occurrence: DE)
  Receive Date: 20130419
  Receipt Date: 20130530
  Transmission Date: 20140414
  Serious: Yes (Other)
  Sender: FDA-Public Use
  Company Number: PHHY2013DE038088

PATIENT
  Sex: Male

DRUGS (8)
  1. FTY 720 [Suspect]
     Indication: MULTIPLE SCLEROSIS
     Dosage: 0.5 MG, QD
     Route: 048
     Dates: start: 20110609
  2. MICTONORM [Concomitant]
     Dosage: 30 MG, DAILY
     Dates: start: 20121120
  3. IBUPROFEN [Concomitant]
     Indication: MUSCULOSKELETAL CHEST PAIN
     Dosage: 1200 MG, BID
     Route: 048
     Dates: start: 20110722
  4. DEXAMETHASONE [Concomitant]
     Dates: start: 20110609, end: 20110617
  5. OMEPRAZOLE [Concomitant]
     Dates: start: 20110609, end: 20110620
  6. ROCEPHIN [Concomitant]
     Dates: start: 20111206, end: 20111220
  7. NOVAMINSULFON [Concomitant]
     Dates: start: 20120203, end: 20120216
  8. LYRICA [Concomitant]
     Dates: start: 20120216, end: 20120315

REACTIONS (3)
  - Carcinoma in situ of penis [Recovered/Resolved]
  - Penile cancer [Recovered/Resolved]
  - Skin discolouration [Unknown]
